FAERS Safety Report 8960969 (Version 1)
Quarter: 2012Q4

REPORT INFORMATION
  Report Type: 
  Country: US (occurrence: US)
  Receive Date: 20121212
  Receipt Date: 20121212
  Transmission Date: 20130627
  Serious: No
  Sender: FDA-Public Use
  Company Number: US-ASTRAZENECA-2012SE92316

PATIENT
  Age: 76 Year
  Sex: Female
  Weight: 59.4 kg

DRUGS (5)
  1. ATENOLOL [Suspect]
     Indication: BLOOD PRESSURE ABNORMAL
     Route: 048
  2. ENTOCORT EC [Suspect]
     Indication: COLITIS ULCERATIVE
     Route: 048
  3. ENTOCORT EC [Suspect]
     Indication: COLITIS ULCERATIVE
     Dosage: GENERIC
     Route: 048
     Dates: start: 2008
  4. VIMOVO [Suspect]
     Indication: ARTHRITIS
     Route: 048
     Dates: start: 2009
  5. ESTROGEN AND PROGESTERONE [Concomitant]

REACTIONS (2)
  - Body height decreased [Unknown]
  - Contusion [Unknown]
